FAERS Safety Report 5234337-3 (Version None)
Quarter: 2007Q1

REPORT INFORMATION
  Report Type: 
  Country: None (occurrence: None)
  Receive Date: 20070209
  Receipt Date: 20070201
  Transmission Date: 20070707
  Serious: Yes (Other)
  Sender: FDA-Public Use
  Company Number: JP-ABBOTT-07P-087-0358150-00

PATIENT
  Age: 9 Year
  Sex: Male
  Weight: 22 kg

DRUGS (12)
  1. SEVOFLURANE [Suspect]
     Indication: MAINTENANCE OF ANAESTHESIA
     Dosage: 1.5%
  2. SEVOFLURANE [Suspect]
     Dosage: 4%
  3. HYDROXYZINE [Concomitant]
     Indication: PREMEDICATION
     Route: 030
  4. ATROPINE [Concomitant]
     Indication: PREMEDICATION
     Route: 030
  5. OXYGEN [Concomitant]
     Indication: MAINTENANCE OF ANAESTHESIA
     Dosage: NOT REPORTED
  6. NITROUS OXIDE W/ OXYGEN [Concomitant]
     Indication: MAINTENANCE OF ANAESTHESIA
     Dosage: NOT REPORTED
  7. PENTAZOSINE [Concomitant]
     Indication: PREMEDICATION
     Route: 030
  8. THYAMIRAL [Concomitant]
     Indication: INDUCTION OF ANAESTHESIA
     Dosage: NOT REPORTED
  9. SUCCINYLCHOLINE CHLORIDE [Concomitant]
     Indication: INDUCTION OF ANAESTHESIA
     Dosage: NOT REPORTED
  10. EPINEPHRINE [Concomitant]
     Indication: DRUG USE FOR UNKNOWN INDICATION
  11. ALPRENOLOL [Concomitant]
     Indication: HYPERTENSION
     Route: 042
  12. ALPRENOLOL [Concomitant]
     Indication: TACHYCARDIA

REACTIONS (1)
  - PULMONARY OEDEMA [None]
